FAERS Safety Report 25010723 (Version 1)
Quarter: 2025Q1

REPORT INFORMATION
  Report Type: Spontaneous
  Country: CN (occurrence: CN)
  Receive Date: 20250225
  Receipt Date: 20250225
  Transmission Date: 20250409
  Serious: Yes (Other)
  Sender: ELI LILLY AND COMPANY
  Company Number: CN-ELI_LILLY_AND_COMPANY-CN202502010941

PATIENT
  Age: 14 Year
  Sex: Female
  Weight: 60 kg

DRUGS (2)
  1. PROZAC [Suspect]
     Active Substance: FLUOXETINE HYDROCHLORIDE
     Indication: Emotional disorder
     Dosage: 560 MG, DAILY
     Route: 048
     Dates: start: 20250208, end: 20250208
  2. ESZOPICLONE [Suspect]
     Active Substance: ESZOPICLONE
     Indication: Emotional disorder
     Dosage: 11 MG, DAILY
     Route: 048
     Dates: start: 20250208, end: 20250208

REACTIONS (7)
  - Blood pressure increased [Recovering/Resolving]
  - Intentional overdose [Recovering/Resolving]
  - Alanine aminotransferase increased [Recovering/Resolving]
  - Aspartate aminotransferase increased [Recovering/Resolving]
  - Gamma-glutamyltransferase increased [Recovering/Resolving]
  - Tachycardia [Recovering/Resolving]
  - Nausea [Recovering/Resolving]

NARRATIVE: CASE EVENT DATE: 20250208
